FAERS Safety Report 8134261-2 (Version None)
Quarter: 2012Q1

REPORT INFORMATION
  Report Type: 
  Country: None (occurrence: None)
  Receive Date: 20120208
  Receipt Date: 20120125
  Transmission Date: 20120608
  Serious: Yes (Hospitalization, Disabling)
  Sender: FDA-Public Use
  Company Number: DK-007589

PATIENT
  Age: 12 Year
  Sex: Female
  Weight: 50 kg

DRUGS (2)
  1. DESMOPRESSIN ACETATE [Suspect]
     Indication: DIABETES MELLITUS
     Dosage: (SUBLINGUAL)
     Route: 060
     Dates: start: 20090903
  2. MINIRIN [Suspect]
     Indication: DIABETES INSIPIDUS
     Dosage: 10 UG QD, NASAL
     Route: 045
     Dates: start: 20091227

REACTIONS (4)
  - DIZZINESS [None]
  - SECONDARY HYPOTHYROIDISM [None]
  - HEADACHE [None]
  - CONDITION AGGRAVATED [None]
